FAERS Safety Report 17376315 (Version 2)
Quarter: 2020Q2

REPORT INFORMATION
  Report Type: Spontaneous
  Country: US (occurrence: US)
  Receive Date: 20200206
  Receipt Date: 20200417
  Transmission Date: 20200713
  Serious: No
  Sender: FDA-Public Use
  Company Number: US-009507513-2002USA000608

PATIENT
  Age: 39 Year
  Sex: Female
  Weight: 74.38 kg

DRUGS (7)
  1. FOLLISTIM AQ [Suspect]
     Active Substance: FOLLITROPIN
     Dosage: 150 INTERNATIONAL UNIT, QD
     Route: 058
     Dates: start: 20200226, end: 20200229
  2. OVIDREL [Concomitant]
     Active Substance: CHORIOGONADOTROPIN ALFA
  3. PREVIDENT [Concomitant]
     Active Substance: SODIUM FLUORIDE
  4. FORTEO [Suspect]
     Active Substance: TERIPARATIDE
     Dosage: STRENGHT:  600 MCG/2.4 ML,1.50 UNITS AS DIRECTED
     Route: 058
     Dates: start: 20200130
  5. METHYLPREDNISOLONE. [Concomitant]
     Active Substance: METHYLPREDNISOLONE
  6. FOLLISTIM AQ [Suspect]
     Active Substance: FOLLITROPIN
     Dosage: 150 INTERNATIONAL UNIT, QD
     Route: 058
     Dates: start: 20200129, end: 20200203
  7. LETROZOLE. [Suspect]
     Active Substance: LETROZOLE

REACTIONS (2)
  - Maternal exposure before pregnancy [Unknown]
  - Blepharospasm [Not Recovered/Not Resolved]

NARRATIVE: CASE EVENT DATE: 202002
